FAERS Safety Report 7992653-6 (Version None)
Quarter: 2011Q4

REPORT INFORMATION
  Report Type: 
  Country: None (occurrence: None)
  Receive Date: 20111219
  Receipt Date: 20110504
  Transmission Date: 20120403
  Serious: No
  Sender: FDA-Public Use
  Company Number: US-ASTRAZENECA-2011SE26902

PATIENT
  Age: 73 Year
  Sex: Female
  Weight: 106.1 kg

DRUGS (4)
  1. CRESTOR [Suspect]
     Indication: BLOOD CHOLESTEROL
     Route: 048
  2. LISINOPRIL [Concomitant]
     Indication: HYPERTENSION
  3. HYDOXYZINE [Concomitant]
     Indication: NERVE INJURY
  4. HYDOXYZINE [Concomitant]
     Indication: PRURITUS

REACTIONS (3)
  - BLOOD PRESSURE INCREASED [None]
  - HYPOAESTHESIA [None]
  - HEART RATE DECREASED [None]
